FAERS Safety Report 8233897-8 (Version None)
Quarter: 2012Q1

REPORT INFORMATION
  Report Type: 
  Country: None (occurrence: None)
  Receive Date: 20120326
  Receipt Date: 20120314
  Transmission Date: 20120608
  Serious: Yes (Other)
  Sender: FDA-Public Use
  Company Number: BR-NOVOPROD-347395

PATIENT
  Age: 53 Year
  Sex: Female
  Weight: 82 kg

DRUGS (5)
  1. VICTOZA [Suspect]
     Indication: TYPE 2 DIABETES MELLITUS
     Dosage: 1.2 MG, QD
     Route: 058
     Dates: start: 20120119, end: 20120312
  2. SIMVASTATIN [Concomitant]
     Indication: BLOOD CHOLESTEROL
     Dosage: 1 TAB, QD
     Route: 048
     Dates: start: 20080314
  3. AMARYL [Concomitant]
     Indication: TYPE 2 DIABETES MELLITUS
     Dosage: 1 TAB, QD
     Route: 048
     Dates: start: 20080314
  4. COROZA [Concomitant]
     Indication: HYPERTENSION
     Dosage: 1 TAB, QD
     Route: 048
     Dates: start: 20080314
  5. METFORMIN HCL [Concomitant]
     Indication: TYPE 2 DIABETES MELLITUS
     Dosage: 3 TAB, QD
     Route: 048
     Dates: start: 20080314

REACTIONS (6)
  - NAUSEA [None]
  - ABDOMINAL PAIN [None]
  - LIPASE INCREASED [None]
  - AMYLASE INCREASED [None]
  - PANCREAS LIPOMATOSIS [None]
  - HEPATIC STEATOSIS [None]
